FAERS Safety Report 7794206-1 (Version None)
Quarter: 2011Q4

REPORT INFORMATION
  Report Type: 
  Country: None (occurrence: None)
  Receive Date: 20111004
  Receipt Date: 20110921
  Transmission Date: 20120403
  Serious: Yes (Hospitalization)
  Sender: FDA-Public Use
  Company Number: US-BAYER-2011-021982

PATIENT
  Age: 17 Year
  Sex: Female
  Weight: 53.968 kg

DRUGS (6)
  1. YAZ [Suspect]
     Indication: CONTRACEPTION
  2. OXYCODONE HCL AND ACETAMINOPHEN [Concomitant]
     Indication: PAIN
     Dosage: UNK
     Dates: start: 20081125, end: 20081227
  3. CEPHALEXIN [Concomitant]
     Dosage: 500 MG, TID
     Route: 048
     Dates: start: 20081023, end: 20081101
  4. AZITHROMYCIN [Concomitant]
     Dosage: 250 MG, QD
     Dates: start: 20081023, end: 20081028
  5. PERCOCET [Concomitant]
  6. LEVAQUIN [Concomitant]
     Indication: INFECTION
     Dosage: 500 MG, QD
     Route: 048
     Dates: start: 20081125, end: 20081205

REACTIONS (4)
  - INJURY [None]
  - DEPRESSION [None]
  - PULMONARY EMBOLISM [None]
  - ANXIETY [None]
